FAERS Safety Report 22386909 (Version 1)
Quarter: 2023Q2

REPORT INFORMATION
  Report Type: Spontaneous
  Country: US (occurrence: US)
  Receive Date: 20230531
  Receipt Date: 20230531
  Transmission Date: 20230721
  Serious: Yes (Hospitalization)
  Sender: FDA-Public Use
  Company Number: US-drreddys-LIT/USA/23/0166019

PATIENT
  Age: 71 Year
  Sex: Male

DRUGS (11)
  1. LEVETIRACETAM [Suspect]
     Active Substance: LEVETIRACETAM
     Indication: Facial pain
     Route: 048
  2. VALPROIC ACID [Suspect]
     Active Substance: VALPROIC ACID
     Indication: Facial pain
  3. FOSPHENYTOIN SODIUM [Suspect]
     Active Substance: FOSPHENYTOIN SODIUM
     Indication: Facial pain
     Route: 042
  4. PREGABALIN [Suspect]
     Active Substance: PREGABALIN
     Indication: Facial pain
  5. PREGABALIN [Suspect]
     Active Substance: PREGABALIN
  6. DESIPRAMINE [Suspect]
     Active Substance: DESIPRAMINE
     Indication: Facial pain
  7. PHENYTOIN [Suspect]
     Active Substance: PHENYTOIN
     Indication: Facial pain
  8. OXCARBAZEPINE [Suspect]
     Active Substance: OXCARBAZEPINE
     Indication: Facial pain
  9. BACLOFEN [Suspect]
     Active Substance: BACLOFEN
     Indication: Facial pain
  10. DULOXETINE [Suspect]
     Active Substance: DULOXETINE
     Indication: Facial pain
  11. GABAPENTIN [Suspect]
     Active Substance: GABAPENTIN
     Indication: Facial pain

REACTIONS (1)
  - Drug ineffective for unapproved indication [Unknown]
